FAERS Safety Report 10978925 (Version 1)
Quarter: 2015Q2

REPORT INFORMATION
  Report Type: Spontaneous
  Country: JP (occurrence: JP)
  Receive Date: 20150402
  Receipt Date: 20150402
  Transmission Date: 20150821
  Serious: Yes (Hospitalization)
  Sender: FDA-Public Use
  Company Number: JP-TEVA-552238ISR

PATIENT
  Age: 44 Year
  Sex: Female

DRUGS (4)
  1. METHYLPREDNISOLONE. [Suspect]
     Active Substance: METHYLPREDNISOLONE
     Indication: THYMOMA
     Dosage: DAYS 1 TO 4
     Route: 065
  2. CISPLATIN. [Suspect]
     Active Substance: CISPLATIN
     Indication: THYMOMA
     Dosage: DAYS 1 TO 4
     Route: 065
  3. DOXORUBICIN NOS [Suspect]
     Active Substance: DOXORUBICIN
     Indication: THYMOMA
     Dosage: DAY 1
     Route: 065
  4. METHYLPREDNISOLONE. [Suspect]
     Active Substance: METHYLPREDNISOLONE
     Dosage: DAYS 5 TO 6
     Route: 065

REACTIONS (1)
  - Myasthenia gravis crisis [Unknown]
